FAERS Safety Report 9111046 (Version 1)
Quarter: 2013Q1

REPORT INFORMATION
  Report Type: Spontaneous
  Country: US (occurrence: US)
  Receive Date: 20130219
  Receipt Date: 20130219
  Transmission Date: 20140127
  Serious: No
  Sender: FDA-Public Use
  Company Number: US-BRISTOL-MYERS SQUIBB COMPANY-16335580

PATIENT
  Age: 54 Year
  Sex: Female
  Weight: 72 kg

DRUGS (1)
  1. ORENCIA [Suspect]
     Indication: RHEUMATOID ARTHRITIS
     Dosage: LAST INF ON 7AUG12,PRESCRIPTION:0138537N
     Route: 058
     Dates: start: 201201

REACTIONS (5)
  - Urinary tract infection [Unknown]
  - Bacterial infection [Unknown]
  - Nausea [Unknown]
  - Influenza like illness [Unknown]
  - Lower extremity mass [Unknown]
